FAERS Safety Report 20906909 (Version 1)
Quarter: 2022Q2

REPORT INFORMATION
  Report Type: Spontaneous
  Country: CN (occurrence: CN)
  Receive Date: 20220602
  Receipt Date: 20220602
  Transmission Date: 20220720
  Serious: Yes (Hospitalization)
  Sender: FDA-Public Use
  Company Number: CN-009507513-2205CHN008201

PATIENT
  Age: 74 Year
  Sex: Female
  Weight: 60 kg

DRUGS (1)
  1. CILASTATIN SODIUM\IMIPENEM [Suspect]
     Active Substance: CILASTATIN SODIUM\IMIPENEM
     Indication: Anti-infective therapy
     Dosage: 1 GRAM, FOUR TIMES A DAY (QID) (EVERY 6 HOURS)
     Route: 041
     Dates: start: 20220305, end: 20220309

REACTIONS (2)
  - Tremor [Recovering/Resolving]
  - Fatigue [Recovering/Resolving]

NARRATIVE: CASE EVENT DATE: 20220309
